FAERS Safety Report 18405851 (Version 1)
Quarter: 2020Q4

REPORT INFORMATION
  Report Type: Spontaneous
  Country: CA (occurrence: CA)
  Receive Date: 20201020
  Receipt Date: 20201020
  Transmission Date: 20210114
  Serious: Yes (Other)
  Sender: FDA-Public Use
  Company Number: CA-SAMSUNG BIOEPIS-SB-2020-32121

PATIENT
  Age: 53 Year
  Sex: Male

DRUGS (2)
  1. AZATHIOPRINE. [Concomitant]
     Active Substance: AZATHIOPRINE
     Indication: PRODUCT USED FOR UNKNOWN INDICATION
     Route: 065
  2. INFLIXIMAB [Suspect]
     Active Substance: INFLIXIMAB
     Indication: CROHN^S DISEASE
     Route: 042

REACTIONS (10)
  - Gastrointestinal disorder [Unknown]
  - Fatigue [Unknown]
  - Memory impairment [Unknown]
  - Off label use [Unknown]
  - Back pain [Unknown]
  - Blood cholesterol increased [Unknown]
  - Weight increased [Unknown]
  - Incorrect dose administered [Unknown]
  - Weight decreased [Unknown]
  - Intentional product use issue [Unknown]
